FAERS Safety Report 24185437 (Version 1)
Quarter: 2024Q3

REPORT INFORMATION
  Report Type: Spontaneous
  Country: US (occurrence: US)
  Receive Date: 20240807
  Receipt Date: 20240807
  Transmission Date: 20241016
  Serious: Yes (Other)
  Sender: MEDICURE
  Company Number: US-MEDICUREINC-2024USSPO00031

PATIENT
  Sex: Male

DRUGS (1)
  1. AGGRASTAT [Suspect]
     Active Substance: TIROFIBAN HYDROCHLORIDE
     Indication: Product use in unapproved indication

REACTIONS (1)
  - Haemorrhage intracranial [Recovered/Resolved]
